FAERS Safety Report 14472577 (Version 2)
Quarter: 2018Q1

REPORT INFORMATION
  Report Type: Report from Study
  Country: US (occurrence: US)
  Receive Date: 20180201
  Receipt Date: 20180209
  Transmission Date: 20180509
  Serious: Yes (Life-Threatening, Hospitalization, Other)
  Sender: FDA-Public Use
  Company Number: US-AMGEN-USASP2018013036

PATIENT
  Sex: Male

DRUGS (2)
  1. ENBREL [Suspect]
     Active Substance: ETANERCEPT
     Indication: RHEUMATOID ARTHRITIS
     Dosage: 50 MG, QWK
     Route: 065
  2. PREGABALIN. [Concomitant]
     Active Substance: PREGABALIN
     Dosage: UNK
     Route: 065

REACTIONS (10)
  - Accidental exposure to product [Unknown]
  - Pneumonia [Unknown]
  - Diabetes mellitus [Unknown]
  - Craniocerebral injury [Unknown]
  - Cerebrovascular accident [Unknown]
  - Multiple sclerosis [Unknown]
  - Infection [Unknown]
  - Pain [Unknown]
  - Wrong technique in product usage process [Unknown]
  - Intervertebral disc protrusion [Not Recovered/Not Resolved]
